FAERS Safety Report 15573084 (Version 1)
Quarter: 2018Q4

REPORT INFORMATION
  Report Type: Spontaneous
  Country: US (occurrence: US)
  Receive Date: 20181031
  Receipt Date: 20181031
  Transmission Date: 20190205
  Serious: No
  Sender: FDA-Public Use
  Company Number: US-SA-2018SA299225

PATIENT
  Age: 56 Year
  Sex: Male

DRUGS (10)
  1. CLINDAMYCIN. [Concomitant]
     Active Substance: CLINDAMYCIN
  2. MINOCYCLINE [Concomitant]
     Active Substance: MINOCYCLINE\MINOCYCLINE HYDROCHLORIDE
  3. OSELTAMIVIR [Concomitant]
     Active Substance: OSELTAMIVIR
  4. MUPIROCIN. [Concomitant]
     Active Substance: MUPIROCIN
  5. LISINOPRIL. [Concomitant]
     Active Substance: LISINOPRIL
  6. CYCLOSPORINE. [Concomitant]
     Active Substance: CYCLOSPORINE
  7. HYDROXYZINE HCL [Concomitant]
     Active Substance: HYDROXYZINE HYDROCHLORIDE
  8. DUPIXENT [Suspect]
     Active Substance: DUPILUMAB
     Indication: PSORIASIS
     Dosage: 300 MG, QOW
     Route: 058
     Dates: start: 20180620
  9. CEPHALEXIN [CEFALEXIN] [Concomitant]
  10. VALACYCLOVIR [VALACICLOVIR] [Concomitant]

REACTIONS (3)
  - Product use in unapproved indication [Unknown]
  - Visual impairment [Unknown]
  - Condition aggravated [Unknown]
